FAERS Safety Report 10219279 (Version 1)
Quarter: 2014Q2

REPORT INFORMATION
  Report Type: Spontaneous
  Country: US (occurrence: US)
  Receive Date: 20140605
  Receipt Date: 20140605
  Transmission Date: 20141212
  Serious: Yes (Other)
  Sender: FDA-Public Use
  Company Number: US-SA-2014SA072519

PATIENT
  Age: 65 Year
  Sex: Female

DRUGS (2)
  1. MOZOBIL [Suspect]
     Indication: PLASMA CELL MYELOMA
     Route: 065
     Dates: start: 20140519, end: 20140519
  2. NEUPOGEN [Concomitant]

REACTIONS (5)
  - Balance disorder [Recovering/Resolving]
  - Nausea [Recovering/Resolving]
  - Asthenia [Recovering/Resolving]
  - Hyperhidrosis [Recovering/Resolving]
  - Vomiting [Not Recovered/Not Resolved]
